FAERS Safety Report 5736257-4 (Version None)
Quarter: 2008Q2

REPORT INFORMATION
  Report Type: 
  Country: None (occurrence: None)
  Receive Date: 20080513
  Receipt Date: 20080501
  Transmission Date: 20081010
  Serious: Yes (Disabling)
  Sender: FDA-Public Use
  Company Number: GB-MERCK-0805GBR00012

PATIENT
  Age: 78 Year
  Sex: Male

DRUGS (6)
  1. PRIMAXIN [Suspect]
     Indication: BRONCHIECTASIS
     Route: 042
     Dates: start: 20080328, end: 20080407
  2. PRIMAXIN [Suspect]
     Indication: LOWER RESPIRATORY TRACT INFECTION
     Route: 042
     Dates: start: 20080328, end: 20080407
  3. RESONIUM CALCIUM [Concomitant]
     Indication: BLOOD POTASSIUM INCREASED
     Route: 048
     Dates: start: 20080405, end: 20080408
  4. DIGOXIN [Concomitant]
     Indication: ATRIAL FIBRILLATION
     Route: 048
  5. ALBUTEROL [Concomitant]
     Indication: CHRONIC OBSTRUCTIVE PULMONARY DISEASE
  6. WARFARIN [Concomitant]
     Indication: ATRIAL FIBRILLATION
     Route: 048

REACTIONS (1)
  - DEAFNESS NEUROSENSORY [None]
